FAERS Safety Report 10191375 (Version 2)
Quarter: 2014Q2

REPORT INFORMATION
  Report Type: Spontaneous
  Country: FR (occurrence: FR)
  Receive Date: 20140523
  Receipt Date: 20140523
  Transmission Date: 20141212
  Serious: Yes (Hospitalization, Other)
  Sender: FDA-Public Use
  Company Number: FR-PFIZER INC-A035586

PATIENT
  Age: 31 Year
  Sex: Female

DRUGS (17)
  1. AZITHROMYCIN [Suspect]
     Indication: ATYPICAL MYCOBACTERIAL INFECTION
     Dosage: 500 MG, 1X/DAY
     Route: 048
     Dates: start: 199802, end: 199804
  2. AZITHROMYCIN [Suspect]
     Dosage: 250 MG, 1X/DAY
     Route: 048
     Dates: start: 199805, end: 199807
  3. NEVIRAPINE [Suspect]
     Indication: HIV INFECTION
     Dosage: 400 MG, 1X/DAY
     Route: 048
     Dates: start: 199805, end: 199807
  4. EFAVIRENZ [Suspect]
     Indication: HIV INFECTION
     Dosage: 600 MG, 1X/DAY
     Route: 048
     Dates: start: 199810, end: 199811
  5. RIFABUTIN [Concomitant]
     Indication: ATYPICAL MYCOBACTERIAL INFECTION
     Dosage: 300 MG, 1X/DAY
     Route: 048
     Dates: start: 199802, end: 199804
  6. RIFABUTIN [Concomitant]
     Dosage: 150 MG, 1X/DAY
     Route: 048
     Dates: start: 199805, end: 199902
  7. AMIKACIN [Concomitant]
     Dosage: 1 G, DAILY
     Route: 048
     Dates: start: 199802, end: 199804
  8. ETHAMBUTOL [Concomitant]
     Dosage: 80 MG, DAILY
     Route: 048
     Dates: start: 199802, end: 199804
  9. ETHAMBUTOL [Concomitant]
     Dosage: UNK
     Route: 048
     Dates: start: 199805, end: 199902
  10. ZIDOVUDINE [Concomitant]
     Dosage: UNK
     Route: 048
     Dates: start: 199805, end: 199807
  11. ZIDOVUDINE [Concomitant]
     Dosage: UNK
     Route: 048
     Dates: start: 199710, end: 199804
  12. LAMIVUDINE [Concomitant]
     Dosage: UNK
     Route: 048
     Dates: start: 199805, end: 199902
  13. PENTAMIDINE [Concomitant]
     Dosage: UNK
     Dates: start: 199601, end: 199902
  14. DIDANOSINE [Concomitant]
     Dosage: 300 MG, DAILY
     Route: 048
     Dates: start: 199808, end: 199902
  15. INDINAVIR [Concomitant]
     Dosage: 800 MG, 3X/DAY
     Route: 048
     Dates: start: 199808, end: 199902
  16. NELFINAVIR [Concomitant]
     Dosage: UNK
     Route: 048
     Dates: start: 199710, end: 199804
  17. ZALCITABINE [Concomitant]
     Dosage: UNK
     Route: 048
     Dates: start: 199710, end: 199804

REACTIONS (2)
  - Hepatitis cholestatic [Recovered/Resolved]
  - Hepatic necrosis [Recovered/Resolved]
